FAERS Safety Report 7285189-1 (Version None)
Quarter: 2011Q1

REPORT INFORMATION
  Report Type: 
  Country: None (occurrence: None)
  Receive Date: 20110210
  Receipt Date: 20110131
  Transmission Date: 20110831
  Serious: Yes (Hospitalization)
  Sender: FDA-Public Use
  Company Number: FR-SANOFI-AVENTIS-2011SA005984

PATIENT
  Age: 64 Year
  Sex: Male

DRUGS (8)
  1. LOVENOX [Suspect]
     Route: 058
     Dates: start: 20101111, end: 20101201
  2. TARGOCID [Suspect]
     Route: 042
     Dates: start: 20101118, end: 20101127
  3. TARGOCID [Suspect]
     Route: 042
     Dates: start: 20101128, end: 20101130
  4. COLCHIMAX [Suspect]
     Route: 048
     Dates: start: 20101123, end: 20101129
  5. KALEORID [Concomitant]
     Route: 048
     Dates: start: 20101119, end: 20101129
  6. INDAPAMIDE [Concomitant]
     Route: 048
  7. CIFLOX [Concomitant]
     Indication: INFECTION
     Route: 065
     Dates: start: 20101116, end: 20101118
  8. RIFADIN [Concomitant]
     Indication: INFECTION
     Route: 065
     Dates: start: 20101116, end: 20101118

REACTIONS (13)
  - DERMATITIS EXFOLIATIVE [None]
  - EOSINOPHIL COUNT INCREASED [None]
  - RENAL FAILURE ACUTE [None]
  - DRUG LEVEL INCREASED [None]
  - RASH [None]
  - THROMBOCYTOPENIA [None]
  - NAUSEA [None]
  - ASPARTATE AMINOTRANSFERASE INCREASED [None]
  - ALANINE AMINOTRANSFERASE INCREASED [None]
  - HYPERTHERMIA [None]
  - CHILLS [None]
  - EFFUSION [None]
  - ANTIBIOTIC RESISTANT STAPHYLOCOCCUS TEST POSITIVE [None]
